FAERS Safety Report 4463472-2 (Version None)
Quarter: 2004Q3

REPORT INFORMATION
  Report Type: 
  Country: None (occurrence: None)
  Receive Date: 20040928
  Receipt Date: 20040910
  Transmission Date: 20050211
  Serious: Yes (Disabling)
  Sender: FDA-Public Use
  Company Number: DSA_24840_2004

PATIENT
  Age: 63 Year
  Sex: Female

DRUGS (3)
  1. TEVETEN [Suspect]
     Indication: HYPERTENSION
     Dosage: 600 MG Q DAY PO
     Route: 048
     Dates: start: 20030724, end: 20030805
  2. ISMIN [Concomitant]
  3. ASPIRIN [Concomitant]

REACTIONS (3)
  - BLOOD PRESSURE DECREASED [None]
  - BLOOD PRESSURE DIASTOLIC DECREASED [None]
  - DIZZINESS [None]
